FAERS Safety Report 21979838 (Version 4)
Quarter: 2023Q1

REPORT INFORMATION
  Report Type: Report from Study
  Country: HU (occurrence: HU)
  Receive Date: 20230210
  Receipt Date: 20230227
  Transmission Date: 20230418
  Serious: Yes (Death, Life-Threatening, Hospitalization)
  Sender: FDA-Public Use
  Company Number: HU-ABBVIE-4257423

PATIENT
  Age: 58 Year
  Sex: Female

DRUGS (14)
  1. VENETOCLAX [Suspect]
     Active Substance: VENETOCLAX
     Indication: Plasma cell myeloma refractory
     Route: 048
     Dates: start: 20220628, end: 20221220
  2. CARFILZOMIB [Suspect]
     Active Substance: CARFILZOMIB
     Indication: Plasma cell myeloma refractory
     Dosage: DAYS 1, 8, AND 15 OF EACH 28 DAY CYCLE
     Route: 042
     Dates: start: 20220628, end: 20221220
  3. DEXAMETHASONE [Suspect]
     Active Substance: DEXAMETHASONE
     Indication: Plasma cell myeloma refractory
     Dosage: CYCLE 1-9 ON DAYS 1, 8, 15 AND 22, CYCLE = 28 DAYS
     Route: 048
     Dates: start: 20220628, end: 20221220
  4. LECALPIN [Concomitant]
     Indication: Hypertension
     Route: 048
     Dates: start: 2020
  5. TELVIRAN [Concomitant]
     Indication: Hypertension
     Route: 048
     Dates: start: 2020
  6. BISOPROLOL [Concomitant]
     Active Substance: BISOPROLOL
     Indication: Hypertension
     Route: 048
     Dates: start: 2020
  7. PANTOPRAZOLE SODIUM [Concomitant]
     Active Substance: PANTOPRAZOLE SODIUM
     Indication: Gastrointestinal disorder prophylaxis
     Route: 048
     Dates: start: 2018
  8. CALCIUM [Concomitant]
     Active Substance: CALCIUM
     Indication: Plasma cell myeloma
     Route: 048
     Dates: start: 201609
  9. CHOLECALCIFEROL [Concomitant]
     Active Substance: CHOLECALCIFEROL
     Indication: Plasma cell myeloma
     Route: 048
     Dates: start: 201609
  10. LEVOFLOXACIN [Concomitant]
     Active Substance: LEVOFLOXACIN
     Indication: Antibiotic prophylaxis
     Route: 048
     Dates: start: 20220618
  11. BACTRIM [Concomitant]
     Active Substance: SULFAMETHOXAZOLE\TRIMETHOPRIM
     Indication: Antibiotic prophylaxis
     Dosage: 2X400/80 MG
     Route: 048
     Dates: start: 20220618
  12. ACYCLOVIR [Concomitant]
     Active Substance: ACYCLOVIR
     Indication: Antibiotic prophylaxis
     Route: 048
     Dates: start: 20220618
  13. ELIQUIS [Concomitant]
     Active Substance: APIXABAN
     Indication: Venous thrombosis
     Route: 048
     Dates: start: 202201, end: 20220628
  14. ELIQUIS [Concomitant]
     Active Substance: APIXABAN
     Indication: Venous thrombosis
     Route: 048
     Dates: start: 20221026

REACTIONS (4)
  - Sepsis [Fatal]
  - Sepsis [Recovered/Resolved]
  - Pneumonia bacterial [Unknown]
  - Multiple organ dysfunction syndrome [Fatal]

NARRATIVE: CASE EVENT DATE: 20221231
